FAERS Safety Report 16028882 (Version 1)
Quarter: 2019Q1

REPORT INFORMATION
  Report Type: Spontaneous
  Country: US (occurrence: US)
  Receive Date: 20190304
  Receipt Date: 20190304
  Transmission Date: 20190418
  Serious: No
  Sender: FDA-Public Use
  Company Number: US-IMPAX LABORATORIES, LLC-2018-IPXL-01197

PATIENT
  Sex: Male
  Weight: 90 kg

DRUGS (3)
  1. RYTARY [Suspect]
     Active Substance: CARBIDOPA\LEVODOPA
     Indication: PARKINSON^S DISEASE
     Dosage: 36.25 /145 MG,1 CAPSULE THREE TIMES DAILY
     Route: 048
     Dates: start: 20180321, end: 2018
  2. RYTARY [Suspect]
     Active Substance: CARBIDOPA\LEVODOPA
     Dosage: 5 MG LESS, UNK
     Route: 048
     Dates: start: 2018
  3. RYTARY [Suspect]
     Active Substance: CARBIDOPA\LEVODOPA
     Dosage: 48.75 /195 MG,1 CAPSULE THREE TIMES DAILY (07:00 AM, AT 12:00 PM AND THE 05:00 PM)
     Route: 048
     Dates: start: 20180424, end: 2018

REACTIONS (2)
  - Tremor [Unknown]
  - Drug ineffective [Unknown]
